FAERS Safety Report 4300279-0 (Version None)
Quarter: 2004Q1

REPORT INFORMATION
  Report Type: 
  Country: None (occurrence: None)
  Receive Date: 20040218
  Receipt Date: 20040129
  Transmission Date: 20041129
  Serious: Yes (Other)
  Sender: FDA-Public Use
  Company Number: USA040157955

PATIENT
  Sex: Female

DRUGS (3)
  1. PROZAC [Suspect]
     Indication: ANXIETY
     Dosage: 40 MG/DAY
  2. PROZAC [Suspect]
     Indication: DEPRESSION
     Dosage: 40 MG/DAY
  3. PROZAC [Suspect]
     Indication: PANIC DISORDER
     Dosage: 40 MG/DAY

REACTIONS (3)
  - GASTROINTESTINAL CARCINOMA [None]
  - HYPERCOAGULATION [None]
  - INTESTINAL INFARCTION [None]
